FAERS Safety Report 5594776-8 (Version None)
Quarter: 2008Q1

REPORT INFORMATION
  Report Type: 
  Country: None (occurrence: None)
  Receive Date: 20080117
  Receipt Date: 20080108
  Transmission Date: 20080703
  Serious: Yes (Hospitalization)
  Sender: FDA-Public Use
  Company Number: A0697810A

PATIENT
  Age: 56 Year
  Sex: Male
  Weight: 101.4 kg

DRUGS (4)
  1. LAPATINIB [Suspect]
     Indication: SQUAMOUS CELL CARCINOMA
     Dosage: 1500MG PER DAY
     Route: 048
     Dates: start: 20071119
  2. DEXAMETHASONE TAB [Concomitant]
  3. GRANISETRON [Concomitant]
     Dosage: 2MG WEEKLY
     Route: 048
     Dates: start: 20071127, end: 20071127
  4. DOMPERIDONE [Concomitant]
     Route: 048

REACTIONS (3)
  - DUODENAL ULCER PERFORATION [None]
  - HAEMORRHAGE [None]
  - LOWER RESPIRATORY TRACT INFECTION [None]
